FAERS Safety Report 20496538 (Version 3)
Quarter: 2023Q1

REPORT INFORMATION
  Report Type: Spontaneous
  Country: US (occurrence: US)
  Receive Date: 20220221
  Receipt Date: 20230331
  Transmission Date: 20230417
  Serious: No
  Sender: FDA-Public Use
  Company Number: US-BAYER-2022A023698

PATIENT
  Age: 57 Year
  Sex: Female

DRUGS (2)
  1. BETASERON [Suspect]
     Active Substance: INTERFERON BETA-1B
     Indication: Multiple sclerosis
     Dosage: UNK
  2. DEVICE [Suspect]
     Active Substance: DEVICE
     Indication: Multiple sclerosis

REACTIONS (4)
  - Device use issue [None]
  - Incorrect dose administered by device [None]
  - Expired device used [None]
  - Device issue [None]

NARRATIVE: CASE EVENT DATE: 20201013
